FAERS Safety Report 9595202 (Version 1)
Quarter: 2013Q4

REPORT INFORMATION
  Report Type: Spontaneous
  Country: US (occurrence: US)
  Receive Date: 20131004
  Receipt Date: 20131004
  Transmission Date: 20140711
  Serious: Yes (Hospitalization)
  Sender: FDA-Public Use
  Company Number: US-BAYER-2013-119803

PATIENT
  Age: 23 Year
  Sex: Female
  Weight: 66.67 kg

DRUGS (2)
  1. YASMIN [Suspect]
  2. PAXIL [Concomitant]
     Indication: ANXIETY
     Dosage: 20 MG, UNK

REACTIONS (1)
  - Pulmonary embolism [None]
